FAERS Safety Report 8014573-3 (Version None)
Quarter: 2011Q4

REPORT INFORMATION
  Report Type: 
  Country: None (occurrence: None)
  Receive Date: 20111229
  Receipt Date: 20111223
  Transmission Date: 20120403
  Serious: Yes (Hospitalization)
  Sender: FDA-Public Use
  Company Number: PHEH2011US012478

PATIENT
  Sex: Female

DRUGS (4)
  1. METAMUCIL-2 [Concomitant]
     Dosage: UNK DF, QD
  2. ACETYLSALICYLIC ACID SRT [Concomitant]
     Dosage: 81 MG, UNK
  3. PREVACID [Concomitant]
     Dosage: UNK
  4. EXFORGE [Suspect]
     Dosage: 1 DF (160/5MG), QD
     Dates: start: 20111208

REACTIONS (2)
  - ABNORMAL DREAMS [None]
  - BLOOD PRESSURE DECREASED [None]
